FAERS Safety Report 9779559 (Version 1)
Quarter: 2013Q4

REPORT INFORMATION
  Report Type: Spontaneous
  Country: GB (occurrence: GB)
  Receive Date: 20131223
  Receipt Date: 20131223
  Transmission Date: 20140711
  Serious: Yes (Hospitalization, Disabling)
  Sender: FDA-Public Use
  Company Number: GB-PFIZER INC-2013364835

PATIENT
  Age: 24 Year
  Sex: Female
  Weight: 50 kg

DRUGS (8)
  1. PREGABALIN [Suspect]
     Indication: ARTHRALGIA
     Dosage: 75 MG, 2X/DAY
     Route: 048
     Dates: start: 20130611
  2. PREGABALIN [Suspect]
     Dosage: 50 MG, 2X/DAY
     Route: 048
  3. PREGABALIN [Suspect]
     Dosage: 25 MG, 2X/DAY
     Route: 048
     Dates: end: 20130801
  4. TRAMADOL [Concomitant]
     Dosage: 100 MG, 4X/DAY REDUCED TO 50MG
  5. TRAMADOL [Concomitant]
     Dosage: 50 MG, 4X/DAY
  6. CODEINE PHOSPHATE [Concomitant]
     Dosage: UNK
  7. MONTELUKAST SODIUM [Concomitant]
     Dosage: UNK
  8. SYMBICORT [Concomitant]
     Dosage: UNK

REACTIONS (2)
  - Convulsion [Recovered/Resolved]
  - Vertigo [Recovered/Resolved]
